FAERS Safety Report 7542187-8 (Version None)
Quarter: 2011Q2

REPORT INFORMATION
  Report Type: 
  Country: None (occurrence: None)
  Receive Date: 20110613
  Receipt Date: 20110606
  Transmission Date: 20111010
  Serious: Yes (Death)
  Sender: FDA-Public Use
  Company Number: FR-ASTELLAS-2011EU003234

PATIENT

DRUGS (1)
  1. MYCAMINE [Suspect]
     Dosage: UNK
     Route: 065

REACTIONS (2)
  - PHLEBITIS [None]
  - DEATH [None]
